FAERS Safety Report 4748076-6 (Version None)
Quarter: 2005Q3

REPORT INFORMATION
  Report Type: 
  Country: None (occurrence: None)
  Receive Date: 20050818
  Receipt Date: 20050813
  Transmission Date: 20060218
  Serious: Yes (Other)
  Sender: FDA-Public Use
  Company Number: GB-GLAXOSMITHKLINE-B0390635A

PATIENT
  Age: 72 Year
  Sex: Male
  Weight: 74 kg

DRUGS (11)
  1. AVANDIA [Suspect]
     Indication: DIABETES MELLITUS
     Dosage: 4MG PER DAY
     Route: 048
     Dates: start: 20050222, end: 20050707
  2. LEVOTHYROXINE [Concomitant]
     Indication: HYPOTHYROIDISM
     Dosage: 50MCG PER DAY
     Route: 048
  3. BECONASE [Concomitant]
     Indication: RHINITIS
     Dates: start: 20040428
  4. COSOPT [Concomitant]
     Indication: GLAUCOMA
     Route: 047
     Dates: start: 20010511
  5. LATANOPROST [Concomitant]
     Route: 061
     Dates: start: 20010511
  6. RAMIPRIL [Concomitant]
     Dosage: 5MG PER DAY
     Route: 048
     Dates: start: 20030101
  7. SIMVASTATIN [Concomitant]
     Dosage: 20MG PER DAY
     Route: 048
     Dates: start: 20030312
  8. BISOPROLOL [Concomitant]
     Dosage: 5MG PER DAY
     Route: 048
     Dates: start: 20030313
  9. ASPIRIN [Concomitant]
     Dosage: 75MG PER DAY
     Route: 048
     Dates: start: 20021015
  10. METFORMIN [Concomitant]
     Dosage: 850MG PER DAY
     Route: 048
     Dates: start: 20021015
  11. GLICLAZIDE [Concomitant]
     Route: 048
     Dates: start: 20050628

REACTIONS (2)
  - ARTHRALGIA [None]
  - MYALGIA [None]
